FAERS Safety Report 10159108 (Version 3)
Quarter: 2014Q2

REPORT INFORMATION
  Report Type: Spontaneous
  Country: US (occurrence: US)
  Receive Date: 20140508
  Receipt Date: 20140618
  Transmission Date: 20141212
  Serious: Yes (Other)
  Sender: FDA-Public Use
  Company Number: US-BRISTOL-MYERS SQUIBB COMPANY-20472759

PATIENT
  Age: 81 Year
  Sex: Female
  Weight: 63.49 kg

DRUGS (4)
  1. ABATACEPT SUBQ INJECTION 125MG/ML [Suspect]
     Indication: RHEUMATOID ARTHRITIS
     Dosage: 18MAR14,25MAR14,01APR14
     Route: 058
     Dates: start: 201205
  2. ARMOUR THYROID [Concomitant]
  3. PREDNISONE [Concomitant]
  4. FENTANYL PATCH [Concomitant]

REACTIONS (4)
  - Erythema multiforme [Unknown]
  - Fatigue [Unknown]
  - Chills [Unknown]
  - Swelling [Unknown]
